FAERS Safety Report 14761790 (Version 2)
Quarter: 2018Q2

REPORT INFORMATION
  Report Type: Report from Study
  Country: BR (occurrence: BR)
  Receive Date: 20180416
  Receipt Date: 20180427
  Transmission Date: 20180711
  Serious: Yes (Other)
  Sender: FDA-Public Use
  Company Number: BR-ROCHE-2102606

PATIENT
  Sex: Female
  Weight: 49 kg

DRUGS (6)
  1. HERCEPTIN [Suspect]
     Active Substance: TRASTUZUMAB
     Dosage: ADJUVANT SETTING
     Route: 065
     Dates: start: 20150808
  2. HERCEPTIN [Suspect]
     Active Substance: TRASTUZUMAB
     Indication: HER-2 POSITIVE BREAST CANCER
     Dosage: NEOADJUVANT SETTING
     Route: 065
     Dates: start: 20150411
  3. TAXOL [Concomitant]
     Active Substance: PACLITAXEL
     Indication: HER-2 POSITIVE BREAST CANCER
     Dosage: NEOADJUVANT SETTING
     Route: 065
     Dates: start: 20150411, end: 20151111
  4. TAXOL [Concomitant]
     Active Substance: PACLITAXEL
     Dosage: ADJUVANT SETTING
     Route: 065
     Dates: start: 20150803, end: 20151003
  5. HERCEPTIN [Suspect]
     Active Substance: TRASTUZUMAB
     Dosage: NEOADJUVANT SETTING
     Route: 065
     Dates: end: 20150811
  6. HERCEPTIN [Suspect]
     Active Substance: TRASTUZUMAB
     Dosage: ADJUVANT SETTING
     Route: 065
     Dates: end: 20151003

REACTIONS (2)
  - HER-2 positive breast cancer [Unknown]
  - Drug ineffective [Unknown]
